FAERS Safety Report 8985722 (Version 1)
Quarter: 2012Q4

REPORT INFORMATION
  Report Type: 
  Country: IE (occurrence: IE)
  Receive Date: 20121226
  Receipt Date: 20121226
  Transmission Date: 20130627
  Serious: Yes (Other)
  Sender: FDA-Public Use
  Company Number: IE-ELI_LILLY_AND_COMPANY-IE201212005361

PATIENT
  Sex: Female

DRUGS (5)
  1. FORSTEO [Suspect]
     Indication: OSTEOPOROSIS
     Dosage: 20 ug, qd
     Route: 058
     Dates: start: 20121102
  2. ASPIRIN [Concomitant]
     Dosage: UNK, unknown
     Route: 065
  3. CALCIUM [Concomitant]
     Dosage: UNK, unknown
     Route: 065
  4. VITAMIN D [Concomitant]
     Dosage: UNK, unknown
     Route: 065
  5. COD LIVER OIL [Concomitant]
     Dosage: UNK, unknown
     Route: 065

REACTIONS (2)
  - Intestinal obstruction [Recovering/Resolving]
  - Constipation [Recovering/Resolving]
